FAERS Safety Report 15276150 (Version 1)
Quarter: 2018Q3

REPORT INFORMATION
  Report Type: Spontaneous
  Country: US (occurrence: US)
  Receive Date: 20180727
  Receipt Date: 20180727
  Transmission Date: 20181010
  Serious: No
  Sender: FDA-Public Use
  Company Number: None

PATIENT
  Age: 36 Year
  Sex: Female

DRUGS (3)
  1. OMEPRAZOLE. [Concomitant]
     Active Substance: OMEPRAZOLE
  2. IRON [Suspect]
     Active Substance: IRON
     Indication: ANAEMIA
     Route: 042
     Dates: start: 20180607, end: 20180607
  3. SUCRALFATE. [Concomitant]
     Active Substance: SUCRALFATE

REACTIONS (6)
  - Malaise [None]
  - Loss of consciousness [None]
  - Presyncope [None]
  - Dizziness [None]
  - Infusion related reaction [None]
  - Blood pressure decreased [None]

NARRATIVE: CASE EVENT DATE: 20180607
